FAERS Safety Report 6765993-6 (Version None)
Quarter: 2010Q2

REPORT INFORMATION
  Report Type: 
  Country: None (occurrence: None)
  Receive Date: 20100611
  Receipt Date: 20100604
  Transmission Date: 20101027
  Serious: Yes (Hospitalization)
  Sender: FDA-Public Use
  Company Number: A0787841A

PATIENT
  Age: 40 Year
  Sex: Male
  Weight: 127.3 kg

DRUGS (10)
  1. AVANDIA [Suspect]
     Dosage: 4MG TWICE PER DAY
     Route: 048
     Dates: start: 20060321, end: 20070817
  2. AVELOX [Concomitant]
  3. ALBUTEROL [Concomitant]
  4. ATROVENT [Concomitant]
  5. INSULIN [Concomitant]
  6. LOPRESSOR [Concomitant]
  7. PEPCID [Concomitant]
  8. VYTORIN [Concomitant]
  9. KDUR [Concomitant]
  10. ZESTRIL [Concomitant]

REACTIONS (6)
  - ACUTE CORONARY SYNDROME [None]
  - CARDIAC DISORDER [None]
  - DYSPNOEA [None]
  - HYPOAESTHESIA [None]
  - MYOCARDIAL INFARCTION [None]
  - PARAESTHESIA [None]
